FAERS Safety Report 23672306 (Version 1)
Quarter: 2024Q1

REPORT INFORMATION
  Report Type: Spontaneous
  Country: US (occurrence: US)
  Receive Date: 20240326
  Receipt Date: 20240326
  Transmission Date: 20240409
  Serious: No
  Sender: FDA-Public Use
  Company Number: US-JNJFOC-20240331350

PATIENT
  Sex: Male

DRUGS (2)
  1. MENS ROGAINE EXTRA STRENGTH [Suspect]
     Active Substance: MINOXIDIL
     Indication: Product used for unknown indication
     Dosage: PRODUCT USING IT FOR THE PAST YEAR AND A HALF
     Route: 065
     Dates: start: 2022
  2. MENS ROGAINE EXTRA STRENGTH [Suspect]
     Active Substance: MINOXIDIL
     Dosage: PRODUCT USING IT FOR THE PAST YEAR AND A HALF
     Route: 065

REACTIONS (2)
  - Inappropriate schedule of product administration [Unknown]
  - Product container issue [Unknown]
